FAERS Safety Report 9664363 (Version 4)
Quarter: 2014Q1

REPORT INFORMATION
  Report Type: Report from Study
  Country: US (occurrence: US)
  Receive Date: 20131101
  Receipt Date: 20140110
  Transmission Date: 20141002
  Serious: Yes (Hospitalization)
  Sender: FDA-Public Use
  Company Number: US-ACTELION-A-US2013-90374

PATIENT
  Age: 84 Year
  Sex: Female

DRUGS (2)
  1. TRACLEER [Suspect]
     Indication: PULMONARY ARTERIAL HYPERTENSION
     Dosage: UNK
     Route: 048
     Dates: start: 20130829
  2. ADCIRCA [Concomitant]

REACTIONS (10)
  - Facial bones fracture [Unknown]
  - Nasal discomfort [Unknown]
  - Fall [Recovered/Resolved]
  - Anxiety [Unknown]
  - Asthenia [Unknown]
  - Oedema [Unknown]
  - Dizziness [Unknown]
  - Presyncope [Unknown]
  - Dyspnoea [Unknown]
  - Cough [Unknown]
